FAERS Safety Report 5442987-4 (Version None)
Quarter: 2007Q3

REPORT INFORMATION
  Report Type: 
  Country: None (occurrence: None)
  Receive Date: 20070905
  Receipt Date: 20070828
  Transmission Date: 20080115
  Serious: Yes (Hospitalization, Other)
  Sender: FDA-Public Use
  Company Number: PHNU2007DE01507

PATIENT
  Sex: Female

DRUGS (4)
  1. SANDIMMUNE [Suspect]
     Indication: LIVER TRANSPLANT
     Dosage: 50-0-50
     Route: 048
     Dates: start: 19920101
  2. FLUOXETINE HCL [Concomitant]
     Dosage: 1-0-0
     Route: 048
  3. DOPASTON [Concomitant]
     Dosage: 0-0-1
     Route: 048
  4. CHEMOTHERAPEUTICS NOS [Concomitant]

REACTIONS (9)
  - DEPRESSION [None]
  - FACIAL NERVE DISORDER [None]
  - INTESTINAL PERFORATION [None]
  - MENSTRUAL DISORDER [None]
  - NON-HODGKIN'S LYMPHOMA [None]
  - OEDEMA [None]
  - PORTAL SHUNT [None]
  - SINUSITIS [None]
  - SMALL INTESTINAL RESECTION [None]
